FAERS Safety Report 8081013-8 (Version None)
Quarter: 2012Q1

REPORT INFORMATION
  Report Type: 
  Country: None (occurrence: None)
  Receive Date: 20120130
  Receipt Date: 20120120
  Transmission Date: 20120608
  Serious: Yes (Other)
  Sender: FDA-Public Use
  Company Number: PHHY2012DE005107

PATIENT
  Age: 35 Year
  Sex: Male

DRUGS (1)
  1. AREDIA [Suspect]
     Indication: ACCIDENT AT WORK
     Dosage: UNK UKN, UNK

REACTIONS (1)
  - AMNESIA [None]
